FAERS Safety Report 23457544 (Version 2)
Quarter: 2024Q2

REPORT INFORMATION
  Report Type: Spontaneous
  Country: AU (occurrence: AU)
  Receive Date: 20240130
  Receipt Date: 20240618
  Transmission Date: 20240716
  Serious: Yes (Hospitalization, Other)
  Sender: FDA-Public Use
  Company Number: AU-SANDOZ-SDZ2024AU008118

PATIENT
  Age: 20 Year
  Sex: Male
  Weight: 68 kg

DRUGS (2)
  1. CYCLOPHOSPHAMIDE [Suspect]
     Active Substance: CYCLOPHOSPHAMIDE
     Indication: Lymphodepletion
     Dosage: 1000 MG/M2, QD, THE LAST DOSE ADMINISTERED  FOR CYCLOPHOSPHAMIDE (CYCLOPHOSPHAMIDE) WAS ON 01-DEC-20
     Route: 042
     Dates: start: 20231128, end: 20231201
  2. FLUDARABINE [Suspect]
     Active Substance: FLUDARABINE PHOSPHATE
     Indication: Lymphodepletion
     Dosage: 30 MG/M2, QD
     Route: 042
     Dates: start: 20231128, end: 20231201

REACTIONS (5)
  - Sepsis [Not Recovered/Not Resolved]
  - Atrial fibrillation [Unknown]
  - Tachycardia [Unknown]
  - Pyrexia [Unknown]
  - Chills [Unknown]

NARRATIVE: CASE EVENT DATE: 20240106
